FAERS Safety Report 6553777-3 (Version None)
Quarter: 2010Q1

REPORT INFORMATION
  Report Type: 
  Country: None (occurrence: None)
  Receive Date: 20100127
  Receipt Date: 20100118
  Transmission Date: 20100710
  Serious: Yes (Hospitalization)
  Sender: FDA-Public Use
  Company Number: FR-EISAI INC.-E3810-03448-SPO-FR

PATIENT
  Sex: Male

DRUGS (4)
  1. PARIET (RABEPRAZOLE) [Suspect]
     Dosage: UNKNOWN
     Route: 048
     Dates: end: 20090508
  2. MEDIATOR [Suspect]
     Route: 048
     Dates: start: 20090128, end: 20090510
  3. EFFEXOR [Suspect]
     Dosage: UNKNOWN
     Route: 048
     Dates: end: 20090510
  4. RIVOTRIL [Suspect]
     Route: 048
     Dates: start: 20090101, end: 20090510

REACTIONS (1)
  - PANCREATITIS ACUTE [None]
